FAERS Safety Report 16190527 (Version 3)
Quarter: 2019Q2

REPORT INFORMATION
  Report Type: Report from Study
  Country: IT (occurrence: IT)
  Receive Date: 20190412
  Receipt Date: 20190530
  Transmission Date: 20190711
  Serious: Yes (Hospitalization)
  Sender: FDA-Public Use
  Company Number: IT-PFIZER INC-2019156366

PATIENT
  Age: 55 Year
  Sex: Female

DRUGS (10)
  1. PANTOPRAZOLE [Suspect]
     Active Substance: PANTOPRAZOLE
     Indication: DRUG ABUSE
     Dosage: 140 DF, UNK
     Route: 048
     Dates: start: 20190304, end: 20190304
  2. BRUFEN [Suspect]
     Active Substance: IBUPROFEN
     Indication: DRUG ABUSE
     Dosage: 18000 MILLIGRAM (30 DF)
     Route: 048
     Dates: start: 20190304, end: 20190304
  3. DEFLAN [Suspect]
     Active Substance: DEFLAZACORT
     Indication: DRUG ABUSE
     Dosage: 60 MILLIGRAM (10 DF)
     Route: 048
     Dates: start: 20190304, end: 20190304
  4. NEO FURADANTIN [Suspect]
     Active Substance: NITROFURANTOIN
     Indication: DRUG ABUSE
     Dosage: 20 DF, UNK
     Route: 048
     Dates: start: 20190304, end: 20190304
  5. AUGMENTIN [Suspect]
     Active Substance: AMOXICILLIN\CLAVULANATE POTASSIUM
     Indication: DRUG ABUSE
     Dosage: 12 DF, UNK
     Route: 048
     Dates: start: 20190304, end: 20190304
  6. DELTACORTENE [Suspect]
     Active Substance: PREDNISONE
     Indication: DRUG ABUSE
     Dosage: 250 MILLIGRAM (10 DF)
     Route: 048
     Dates: start: 20190304, end: 20190304
  7. BREXIN (PIROXICAM BETADEX) [Suspect]
     Active Substance: PIROXICAM BETADEX
     Indication: DRUG ABUSE
     Dosage: 240 MILLIGRAM (12 DF)
     Route: 048
     Dates: start: 20190304, end: 20190304
  8. DEURSIL [Suspect]
     Active Substance: URSODIOL
     Indication: DRUG ABUSE
     Dosage: 1500 MILLIGRAM (5 DF)
     Route: 048
     Dates: start: 20190304, end: 20190304
  9. PARACODINA [DIHYDROCODEINE BITARTRATE] [Suspect]
     Active Substance: DIHYDROCODEINE BITARTRATE
     Indication: DRUG ABUSE
     Dosage: 1 DF, UNK
     Route: 048
     Dates: start: 20190304, end: 20190304
  10. SPORANOX [Suspect]
     Active Substance: ITRACONAZOLE
     Indication: DRUG ABUSE
     Dosage: 1000 MILLIGRAM (10 DF)
     Route: 048
     Dates: start: 20190304, end: 20190304

REACTIONS (4)
  - Overdose [Recovered/Resolved]
  - Aphasia [Recovered/Resolved]
  - Drug abuse [Recovered/Resolved]
  - Sopor [Recovered/Resolved]

NARRATIVE: CASE EVENT DATE: 20190304
